FAERS Safety Report 5215672-1 (Version None)
Quarter: 2007Q1

REPORT INFORMATION
  Report Type: 
  Country: None (occurrence: None)
  Receive Date: 20070123
  Receipt Date: 20070118
  Transmission Date: 20070707
  Serious: Yes (Death)
  Sender: FDA-Public Use
  Company Number: MY-AVENTIS-200710230EU

PATIENT
  Age: 53 Year
  Sex: Male

DRUGS (4)
  1. CLEXANE [Suspect]
     Route: 058
     Dates: start: 20060809, end: 20060816
  2. CLEXANE [Suspect]
     Route: 058
     Dates: start: 20060817, end: 20060818
  3. INSULIN [Concomitant]
     Route: 042
     Dates: start: 20060809
  4. UNASYN ORAL                        /00903601/ [Concomitant]
     Route: 042
     Dates: start: 20060809

REACTIONS (2)
  - DRUG INEFFECTIVE [None]
  - PULMONARY EMBOLISM [None]
